FAERS Safety Report 5605614-9 (Version None)
Quarter: 2008Q1

REPORT INFORMATION
  Report Type: 
  Country: None (occurrence: None)
  Receive Date: 20080129
  Receipt Date: 20080121
  Transmission Date: 20080703
  Serious: Yes (Hospitalization)
  Sender: FDA-Public Use
  Company Number: US-JNJFOC-20071110716

PATIENT
  Sex: Female
  Weight: 92.99 kg

DRUGS (11)
  1. REMICADE [Suspect]
     Route: 042
  2. REMICADE [Suspect]
     Route: 042
  3. REMICADE [Suspect]
     Route: 042
  4. REMICADE [Suspect]
     Indication: PSORIASIS
     Route: 042
  5. REMICADE [Suspect]
     Indication: PSORIATIC ARTHROPATHY
     Route: 042
  6. MOTRIN [Concomitant]
  7. ZOLOFT [Concomitant]
     Indication: DEPRESSION
  8. GLUCOPHAGE [Concomitant]
     Indication: DIABETES MELLITUS
  9. SYNTHROID [Concomitant]
     Indication: HYPOTHYROIDISM
  10. ACIPHEX [Concomitant]
     Indication: GASTROOESOPHAGEAL REFLUX DISEASE
  11. OXYCONTIN [Concomitant]
     Indication: INTERVERTEBRAL DISC DEGENERATION

REACTIONS (5)
  - CARDIAC DISORDER [None]
  - DYSPNOEA [None]
  - INFECTION [None]
  - INFLUENZA LIKE ILLNESS [None]
  - VOMITING [None]
